FAERS Safety Report 10534700 (Version 2)
Quarter: 2014Q4

REPORT INFORMATION
  Report Type: Spontaneous
  Country: US (occurrence: US)
  Receive Date: 20141022
  Receipt Date: 20141216
  Transmission Date: 20150529
  Serious: Yes (Hospitalization, Other)
  Sender: FDA-Public Use
  Company Number: US-GLAXOSMITHKLINE-US2014GSK008927

PATIENT
  Age: 87 Year
  Sex: Female

DRUGS (5)
  1. ADVAIR DISKUS [Suspect]
     Active Substance: FLUTICASONE PROPIONATE\SALMETEROL XINAFOATE
     Indication: ASTHMA
     Dosage: 1 PUFF(S), BID
  2. ALBUTEROL. [Concomitant]
     Active Substance: ALBUTEROL
  3. MULTIPLE DRUGS [Concomitant]
     Active Substance: UNSPECIFIED INGREDIENT
  4. ADVAIR DISKUS [Suspect]
     Active Substance: FLUTICASONE PROPIONATE\SALMETEROL XINAFOATE
     Indication: MULTIPLE ALLERGIES
  5. AMIODARONE [Suspect]
     Active Substance: AMIODARONE
     Indication: PRODUCT USED FOR UNKNOWN INDICATION
     Dosage: UNK
     Dates: end: 201406

REACTIONS (8)
  - Delirium [Recovered/Resolved]
  - Drug dose omission [Not Recovered/Not Resolved]
  - Fall [Recovered/Resolved]
  - Chest pain [Recovered/Resolved]
  - Blood sodium decreased [Recovered/Resolved]
  - Spinal fracture [Recovering/Resolving]
  - Product quality issue [Unknown]
  - Atrial fibrillation [Recovered/Resolved]

NARRATIVE: CASE EVENT DATE: 201405
